FAERS Safety Report 11434319 (Version 2)
Quarter: 2015Q3

REPORT INFORMATION
  Report Type: Spontaneous
  Country: FR (occurrence: FR)
  Receive Date: 20150831
  Receipt Date: 20150914
  Transmission Date: 20151125
  Serious: Yes (Hospitalization)
  Sender: FDA-Public Use
  Company Number: FR-UCBSA-2015027381

PATIENT
  Age: 8 Year
  Sex: Male
  Weight: 24 kg

DRUGS (6)
  1. METHYLPHENIDATE HYDROCHLORIDE. [Suspect]
     Active Substance: METHYLPHENIDATE HYDROCHLORIDE
     Dosage: 20 MG, ONCE DAILY (QD)
     Route: 048
     Dates: start: 20150807, end: 20150807
  2. METHYLPHENIDATE HYDROCHLORIDE. [Suspect]
     Active Substance: METHYLPHENIDATE HYDROCHLORIDE
     Dosage: 10 MG, ONCE DAILY (QD)
     Route: 048
     Dates: start: 20150727, end: 20150806
  3. LAMICTAL [Concomitant]
     Active Substance: LAMOTRIGINE
     Indication: PRODUCT USED FOR UNKNOWN INDICATION
     Dosage: UNK
     Dates: start: 2011
  4. METHYLPHENIDATE HYDROCHLORIDE. [Suspect]
     Active Substance: METHYLPHENIDATE HYDROCHLORIDE
     Dosage: 20 MG, ONCE DAILY (QD)
     Route: 048
     Dates: start: 201505, end: 201506
  5. MELATONIN [Concomitant]
     Active Substance: MELATONIN
     Indication: PRODUCT USED FOR UNKNOWN INDICATION
     Dosage: UNK
     Dates: start: 20150429
  6. METHYLPHENIDATE HYDROCHLORIDE. [Suspect]
     Active Substance: METHYLPHENIDATE HYDROCHLORIDE
     Indication: ATTENTION DEFICIT/HYPERACTIVITY DISORDER
     Dosage: 10 MG, ONCE DAILY (QD)
     Route: 048
     Dates: start: 201504, end: 201505

REACTIONS (11)
  - Paraesthesia [Recovered/Resolved]
  - Nausea [Recovered/Resolved]
  - Abdominal pain [Recovered/Resolved]
  - Movement disorder [Recovered/Resolved]
  - Arthralgia [Recovered/Resolved]
  - Pain [Recovered/Resolved]
  - VIIth nerve paralysis [Recovered/Resolved]
  - Muscle spasms [Recovered/Resolved]
  - Headache [Recovered/Resolved]
  - Asthenia [Recovered/Resolved]
  - Limb discomfort [Recovered/Resolved]

NARRATIVE: CASE EVENT DATE: 20150807
